FAERS Safety Report 6610340-3 (Version None)
Quarter: 2010Q1

REPORT INFORMATION
  Report Type: 
  Country: None (occurrence: None)
  Receive Date: 20100302
  Receipt Date: 20100226
  Transmission Date: 20100710
  Serious: Yes (Life-Threatening, Hospitalization)
  Sender: FDA-Public Use
  Company Number: PHHY2010TW06868

PATIENT
  Sex: Female
  Weight: 51 kg

DRUGS (4)
  1. ACLASTA [Suspect]
     Indication: OSTEOPOROSIS
     Dosage: 5 MD/ 100 C.C.
     Route: 042
     Dates: start: 20100128
  2. ACLASTA [Suspect]
     Indication: COMPRESSION FRACTURE
  3. ASPIRIN [Concomitant]
     Indication: ISCHAEMIC STROKE
     Dosage: 100 MG, QD
     Route: 048
     Dates: start: 20090416, end: 20100212
  4. PERSANTINE [Concomitant]
     Indication: ISCHAEMIC STROKE
     Dosage: 50 MG, TID
     Route: 048
     Dates: start: 20090416, end: 20100212

REACTIONS (14)
  - ALTERED STATE OF CONSCIOUSNESS [None]
  - BLOOD GLUCOSE INCREASED [None]
  - CEREBRAL HAEMORRHAGE [None]
  - DECREASED APPETITE [None]
  - DISORIENTATION [None]
  - DYSURIA [None]
  - HAEMORRHAGIC STROKE [None]
  - HYPERTENSION [None]
  - HYPONATRAEMIA [None]
  - MALAISE [None]
  - MUSCULAR WEAKNESS [None]
  - OCCULT BLOOD POSITIVE [None]
  - SOMNOLENCE [None]
  - STUPOR [None]
